FAERS Safety Report 9855259 (Version 2)
Quarter: 2014Q2

REPORT INFORMATION
  Report Type: Spontaneous
  Country: US (occurrence: None)
  Receive Date: 20131224
  Receipt Date: 20131224
  Transmission Date: 20141212
  Serious: Yes (Other)
  Sender: FDA-Public Use
  Company Number: PHEH2013US016990

PATIENT
  Age: 61 Year
  Sex: Female
  Weight: 54.4 kg

DRUGS (10)
  1. GILENYA [Suspect]
     Indication: MULTIPLE SCLEROSIS
     Route: 048
     Dates: start: 20130807, end: 20130807
  2. NEURONTIN (GABAPENTIN) [Concomitant]
  3. NEXUM [Concomitant]
  4. VITAMIN D [Concomitant]
  5. ZANTAC [Concomitant]
  6. OMEGA 3 FISH OIL [Concomitant]
  7. SOLUMEDROL [Concomitant]
  8. ZOCOR [Concomitant]
  9. BACLOFEN [Concomitant]
  10. KLONOPIN [Concomitant]

REACTIONS (6)
  - Atrioventricular block first degree [None]
  - Bradycardia [None]
  - Sinus bradycardia [None]
  - Electrocardiogram abnormal [None]
  - Blood pressure decreased [None]
  - Atrioventricular block second degree [None]
